FAERS Safety Report 10233969 (Version 3)
Quarter: 2014Q2

REPORT INFORMATION
  Report Type: Report from Study
  Country: US (occurrence: US)
  Receive Date: 20140612
  Receipt Date: 20140626
  Transmission Date: 20141212
  Serious: Yes (Hospitalization, Other)
  Sender: FDA-Public Use
  Company Number: PHEH2014US009758

PATIENT
  Age: 23 Year
  Sex: Female
  Weight: 67 kg

DRUGS (3)
  1. TOBI PODHALER [Suspect]
     Indication: CYSTIC FIBROSIS
     Dosage: 112 MG, BID
     Route: 055
     Dates: start: 201404, end: 201405
  2. TOBI PODHALER [Suspect]
     Indication: CYSTIC FIBROSIS LUNG
  3. TOBI [Suspect]
     Dosage: UNK UKN, UNK

REACTIONS (3)
  - Cystic fibrosis [Recovering/Resolving]
  - Condition aggravated [Recovering/Resolving]
  - Haemoptysis [Recovering/Resolving]
